FAERS Safety Report 10993893 (Version 2)
Quarter: 2016Q2

REPORT INFORMATION
  Report Type: Spontaneous
  Country: CA (occurrence: CA)
  Receive Date: 20150407
  Receipt Date: 20160628
  Transmission Date: 20160815
  Serious: No
  Sender: FDA-Public Use
  Company Number: CA-ROCHE-1561019

PATIENT
  Age: 59 Year
  Sex: Male

DRUGS (3)
  1. XOLAIR [Suspect]
     Active Substance: OMALIZUMAB
     Route: 058
     Dates: start: 20160519
  2. XOLAIR [Suspect]
     Active Substance: OMALIZUMAB
     Route: 058
     Dates: start: 20160621
  3. XOLAIR [Suspect]
     Active Substance: OMALIZUMAB
     Indication: CHRONIC SPONTANEOUS URTICARIA
     Route: 058
     Dates: start: 20150212

REACTIONS (5)
  - Lip swelling [Unknown]
  - Rash generalised [Unknown]
  - Swelling face [Unknown]
  - Pain in extremity [Unknown]
  - Urticaria [Unknown]

NARRATIVE: CASE EVENT DATE: 20150212
